FAERS Safety Report 5522141-8 (Version None)
Quarter: 2007Q4

REPORT INFORMATION
  Report Type: 
  Country: None (occurrence: None)
  Receive Date: 20071120
  Receipt Date: 20071106
  Transmission Date: 20080405
  Serious: Yes (Other)
  Sender: FDA-Public Use
  Company Number: GB-BAUSCH-2007BL004056

PATIENT
  Age: 61 Year
  Sex: Female

DRUGS (3)
  1. PREDNISOLONE SODIUM PHOSPHATE [Suspect]
     Indication: COLITIS ULCERATIVE
     Route: 048
  2. ASACOL [Concomitant]
     Route: 048
  3. PREDFOAM [Concomitant]

REACTIONS (1)
  - FAT REDISTRIBUTION [None]
